FAERS Safety Report 5228511-X (Version None)
Quarter: 2007Q1

REPORT INFORMATION
  Report Type: 
  Country: None (occurrence: None)
  Receive Date: 20070205
  Receipt Date: 20070124
  Transmission Date: 20070707
  Serious: Yes (Death, Hospitalization, Other)
  Sender: FDA-Public Use
  Company Number: HQWYE855218APR06

PATIENT
  Sex: Male
  Weight: 18 kg

DRUGS (43)
  1. MYLOTARG [Suspect]
     Indication: ACUTE MYELOID LEUKAEMIA RECURRENT
     Route: 041
     Dates: start: 20060118, end: 20060118
  2. MYLOTARG [Suspect]
     Route: 041
     Dates: start: 20060201, end: 20060201
  3. NOVANTRONE [Concomitant]
     Indication: ACUTE MYELOID LEUKAEMIA
     Dosage: NOT PROVIDED
     Route: 042
     Dates: start: 20051126, end: 20051206
  4. LENOGRASTIM [Concomitant]
     Indication: ACUTE MYELOID LEUKAEMIA RECURRENT
     Dosage: NOT PROVIDED
     Route: 042
     Dates: start: 20051227, end: 20051230
  5. LENOGRASTIM [Concomitant]
     Dosage: 250 U G/DAY
     Route: 041
     Dates: start: 20060220, end: 20060224
  6. IDARUBICIN HCL [Suspect]
     Indication: ACUTE MYELOID LEUKAEMIA RECURRENT
     Dosage: NOT PROVIDED
     Route: 042
     Dates: start: 20051227, end: 20051230
  7. IDARUBICIN HCL [Suspect]
     Dosage: NOT PROVIDED
     Route: 042
     Dates: start: 20060221, end: 20060224
  8. FRAGMIN [Concomitant]
     Dosage: 1500 IU/ 24 HOUR
     Route: 041
     Dates: start: 20060104
  9. FUTHAN [Concomitant]
     Dosage: 70 MG/ 24 HOUR
     Dates: start: 20060116, end: 20060118
  10. FUTHAN [Concomitant]
     Dosage: 110 MG/24 HOUR
     Route: 041
     Dates: start: 20060119, end: 20060124
  11. FUTHAN [Concomitant]
     Dosage: 60 MG/24 HOUR
     Route: 041
     Dates: start: 20060125, end: 20060126
  12. FUTHAN [Concomitant]
     Dosage: 30 MG/24 HOUR
     Route: 041
     Dates: start: 20060127, end: 20060129
  13. FUTHAN [Concomitant]
     Dosage: 60 MG/24 HOUR
     Route: 041
     Dates: start: 20060130, end: 20060131
  14. FUTHAN [Concomitant]
     Dosage: 110 MG/24 HOUR
     Route: 041
     Dates: start: 20060201
  15. STRONG NEO-MINOPHAGEN C [Concomitant]
     Dosage: 20 ML/DAY
     Route: 041
     Dates: start: 20051228
  16. TATHION [Concomitant]
     Dosage: 200 MG/DAY
     Route: 041
     Dates: start: 20051228
  17. FLUDARABINE PHOSPHATE [Concomitant]
     Indication: ACUTE MYELOID LEUKAEMIA RECURRENT
     Dosage: NOT PROVIDED
     Route: 042
     Dates: start: 20051227, end: 20051230
  18. FLUDARABINE PHOSPHATE [Concomitant]
     Dosage: NOT PROVIDED
     Route: 042
     Dates: start: 20060221, end: 20060224
  19. TARGOCID [Concomitant]
     Dosage: 200 MG/DAY
     Route: 041
     Dates: start: 20060206, end: 20060216
  20. PRODIF [Concomitant]
     Dosage: 100 MG/DAY
     Route: 042
     Dates: start: 20060206, end: 20060206
  21. VFEND [Concomitant]
     Dosage: 200 MG/DAY
     Route: 041
     Dates: start: 20060207, end: 20060207
  22. VFEND [Concomitant]
     Dosage: 160 MG/DAY
     Route: 041
     Dates: start: 20060208, end: 20060210
  23. SOLDACTONE [Concomitant]
     Indication: PROPHYLAXIS
     Dosage: 200 MG/DAY
     Route: 042
     Dates: start: 20060210, end: 20060210
  24. SOLU-CORTEF [Concomitant]
     Indication: PROPHYLAXIS
     Dosage: 100 MG/DAY
     Route: 041
     Dates: start: 20060210, end: 20060210
  25. SOLU-CORTEF [Concomitant]
     Dosage: 100 MG/DAY
     Route: 041
     Dates: start: 20060213
  26. SOLU-CORTEF [Concomitant]
     Dosage: 100 MG/DAY
     Route: 041
     Dates: start: 20060216, end: 20060216
  27. LASIX [Concomitant]
     Indication: PROPHYLAXIS
     Dosage: 10 MG/DAY
     Route: 042
     Dates: start: 20060211, end: 20060212
  28. LASIX [Concomitant]
     Dosage: 5 MG/DAY
     Route: 042
     Dates: start: 20060213, end: 20060214
  29. LASIX [Concomitant]
     Dosage: 10 MG/DAY
     Dates: start: 20060215, end: 20060215
  30. LASIX [Concomitant]
     Dosage: 10 MG/DAY
     Route: 042
     Dates: start: 20060217, end: 20060219
  31. LASIX [Concomitant]
     Dosage: 10 MG/DAY
     Route: 042
     Dates: start: 20060221, end: 20060221
  32. LASIX [Concomitant]
     Dosage: 5 MG/DAY
     Route: 042
     Dates: start: 20060222, end: 20060223
  33. LASIX [Concomitant]
     Dosage: NOT PROVIDED
     Route: 048
     Dates: start: 20060213
  34. ALDACTONE [Concomitant]
     Indication: PROPHYLAXIS
     Dosage: NOT PROVIDED
     Route: 048
     Dates: start: 20060213
  35. ATARAX [Concomitant]
     Indication: PROPHYLAXIS
     Dosage: 25 MG/DAY
     Route: 041
     Dates: start: 20060216, end: 20060216
  36. ATARAX [Concomitant]
     Dosage: 25 MG/DAY
     Route: 041
     Dates: start: 20060227, end: 20060227
  37. SOLU-MEDROL [Concomitant]
     Indication: PROPHYLAXIS
     Dosage: 80 MG/DAY
     Route: 041
     Dates: start: 20060222, end: 20060225
  38. SOLU-MEDROL [Concomitant]
     Dosage: 40 MG/DAY
     Route: 041
     Dates: start: 20060227, end: 20060227
  39. ACETAZOLAMIDE [Concomitant]
     Indication: PROPHYLAXIS
     Dosage: 250 MG/DAY
     Route: 042
     Dates: start: 20060222, end: 20060304
  40. ZANTAC [Concomitant]
     Indication: PROPHYLAXIS
     Dosage: 50 MG/DAY
     Route: 042
     Dates: start: 20060222, end: 20060228
  41. CYTARABINE [Concomitant]
     Indication: ACUTE MYELOID LEUKAEMIA RECURRENT
     Dosage: NOT PROVIDED
     Route: 042
     Dates: start: 20051125, end: 20051206
  42. CYTARABINE [Concomitant]
     Dosage: NOT PROVIDED
     Route: 042
     Dates: start: 20051227, end: 20051230
  43. CYTARABINE [Concomitant]
     Dosage: NOT PROVIDED
     Route: 042
     Dates: start: 20060221, end: 20060224

REACTIONS (7)
  - ANAEMIA [None]
  - DYSPNOEA [None]
  - HYPOXIA [None]
  - PERICARDIAL EFFUSION [None]
  - TUMOUR LYSIS SYNDROME [None]
  - VENTRICULAR DYSFUNCTION [None]
  - VENTRICULAR FAILURE [None]
